FAERS Safety Report 4919783-7 (Version None)
Quarter: 2006Q1

REPORT INFORMATION
  Report Type: 
  Country: None (occurrence: None)
  Receive Date: 20060216
  Receipt Date: 20060202
  Transmission Date: 20060701
  Serious: Yes (Hospitalization)
  Sender: FDA-Public Use
  Company Number: 20060015

PATIENT
  Age: 47 Year
  Sex: Female

DRUGS (5)
  1. VENOFER [Suspect]
     Dosage: 200 MG INTRAVENOUS
     Route: 042
     Dates: start: 20060105
  2. NEXIUM [Concomitant]
  3. OROPRAM [Concomitant]
  4. LEXOTAN [Concomitant]
  5. SOBRIL [Concomitant]

REACTIONS (7)
  - ABDOMINAL PAIN [None]
  - ERYTHEMA [None]
  - HEPATIC PAIN [None]
  - LIVER FUNCTION TEST ABNORMAL [None]
  - MALAISE [None]
  - PRURITUS [None]
  - PYREXIA [None]
